FAERS Safety Report 16162742 (Version 1)
Quarter: 2019Q2

REPORT INFORMATION
  Report Type: Spontaneous
  Country: US (occurrence: US)
  Receive Date: 20190404
  Receipt Date: 20190404
  Transmission Date: 20190711
  Serious: Yes (Disabling)
  Sender: FDA-Public Use
  Company Number: None

PATIENT
  Age: 42 Year
  Sex: Female
  Weight: 56.25 kg

DRUGS (1)
  1. GADAVIST [Suspect]
     Active Substance: GADOBUTROL

REACTIONS (31)
  - Migraine [None]
  - Musculoskeletal chest pain [None]
  - Alopecia [None]
  - Gait disturbance [None]
  - Abdominal pain [None]
  - Stress [None]
  - Trichorrhexis [None]
  - Bedridden [None]
  - Pruritus [None]
  - Feeling abnormal [None]
  - Gadolinium deposition disease [None]
  - Eye pain [None]
  - Asthenia [None]
  - Myalgia [None]
  - Visual impairment [None]
  - Toothache [None]
  - Depression [None]
  - Irritability [None]
  - Agitation [None]
  - Arthralgia [None]
  - Bone pain [None]
  - Chest discomfort [None]
  - Vision blurred [None]
  - Pain in jaw [None]
  - Cognitive disorder [None]
  - Confusional state [None]
  - Erythema [None]
  - Burning sensation [None]
  - Pelvic pain [None]
  - Feeling of body temperature change [None]
  - Speech disorder [None]

NARRATIVE: CASE EVENT DATE: 20181109
